FAERS Safety Report 6390597-7 (Version None)
Quarter: 2009Q4

REPORT INFORMATION
  Report Type: 
  Country: None (occurrence: None)
  Receive Date: 20091005
  Receipt Date: 20091005
  Transmission Date: 20100525
  Serious: Yes (Other)
  Sender: FDA-Public Use
  Company Number: None

PATIENT
  Age: 46 Year
  Sex: Male
  Weight: 66.6788 kg

DRUGS (1)
  1. ZICAM COLD REMEDY GEL SWAB [Suspect]
     Dosage: 1

REACTIONS (2)
  - HYPOSMIA [None]
  - NASAL DISCOMFORT [None]
